FAERS Safety Report 4778373-X (Version None)
Quarter: 2005Q3

REPORT INFORMATION
  Report Type: 
  Country: None (occurrence: None)
  Receive Date: 20050926
  Receipt Date: 20050919
  Transmission Date: 20060218
  Serious: Yes (Life-Threatening, Disabling)
  Sender: FDA-Public Use
  Company Number: BR-GLAXOSMITHKLINE-A0574897A

PATIENT
  Age: 37 Year
  Sex: Female

DRUGS (4)
  1. SERETIDE [Suspect]
     Route: 055
     Dates: start: 20050917, end: 20050917
  2. ALPRAZOLAM [Concomitant]
     Route: 065
     Dates: start: 20050221
  3. OLANZAPINE [Concomitant]
     Route: 065
     Dates: start: 20050221
  4. BETAHISTINE HYDROCHLORIDE [Concomitant]
     Dosage: 24MG TWICE PER DAY
     Route: 065
     Dates: start: 20050221

REACTIONS (11)
  - DIZZINESS [None]
  - DYSKINESIA [None]
  - FATIGUE [None]
  - HEADACHE [None]
  - HYPOAESTHESIA [None]
  - HYPOTENSION [None]
  - IMMOBILE [None]
  - PANIC DISORDER [None]
  - SYNCOPE [None]
  - THINKING ABNORMAL [None]
  - TREMOR [None]
